FAERS Safety Report 10100898 (Version 2)
Quarter: 2014Q2

REPORT INFORMATION
  Report Type: Report from Study
  Country: US (occurrence: US)
  Receive Date: 20140423
  Receipt Date: 20140423
  Transmission Date: 20141212
  Serious: No
  Sender: FDA-Public Use
  Company Number: PHEH2012US017801

PATIENT
  Age: 53 Year
  Sex: Male

DRUGS (19)
  1. TASIGNA [Suspect]
     Indication: CHRONIC MYELOID LEUKAEMIA
     Dosage: 400 MG, BID
     Route: 048
     Dates: start: 20110315
  2. TASIGNA [Suspect]
     Dosage: 400 MG, BID
     Route: 048
     Dates: start: 201205
  3. TASIGNA [Suspect]
     Dosage: 400 MG, BID
     Route: 048
     Dates: start: 20131101
  4. ABILIFY [Concomitant]
     Dosage: 1 DF, QD
     Route: 048
  5. BUSPIRONE [Concomitant]
     Dosage: 1 DF, BID
     Route: 048
  6. DILAUDID [Concomitant]
     Dosage: 1 DF, EVERY 6 HOURS AS NEEDED
     Route: 048
  7. FENTANYL [Concomitant]
     Dosage: 100 UG/HR, EVERY 48 HOURS
     Route: 062
     Dates: start: 20130128
  8. FENTANYL [Concomitant]
     Dosage: 50 UG/HR, EVERY 48 HOURS
     Route: 062
  9. GABAPENTIN [Concomitant]
     Dosage: 1 DF, TID
     Route: 048
  10. HYDROMORPHONE [Concomitant]
     Dosage: 1 DF, EVERY 6 HOURS AS NEEDED
     Route: 048
  11. METHOCARBAMOL [Concomitant]
     Dosage: 1 DF, EVERY 4 HOURS
     Route: 048
  12. METOPROLOL SUCCINATE [Concomitant]
     Dosage: 1 DF, QD
     Route: 048
  13. NITROGLYCERIN [Concomitant]
     Dosage: 1 DF, PRN
     Route: 060
     Dates: start: 20120312
  14. PROCHLORPERAZINE MALEATE [Concomitant]
     Indication: NAUSEA
     Dosage: 1 DF, Q4-6H PRN
     Route: 048
     Dates: start: 20120831
  15. PROCHLORPERAZINE MALEATE [Concomitant]
     Indication: VOMITING
  16. RANITIDINE HCL [Concomitant]
     Dosage: 1 DF, BID
     Route: 048
  17. TRAZODONE [Concomitant]
     Dosage: 1 DF, BID AFTER MEALS
     Route: 048
  18. VENLAFAXINE [Concomitant]
     Dosage: 1 DF, TID
     Route: 048
  19. ZOFRAN [Concomitant]
     Dosage: 1 DF, TID PRN
     Route: 048
     Dates: start: 20121227

REACTIONS (4)
  - Trichorrhexis [Recovered/Resolved]
  - Onychoclasis [Unknown]
  - Acne [Recovered/Resolved]
  - Skin exfoliation [Recovered/Resolved]
